FAERS Safety Report 4744678-1 (Version None)
Quarter: 2005Q3

REPORT INFORMATION
  Report Type: 
  Country: None (occurrence: None)
  Receive Date: 20050815
  Receipt Date: 20050803
  Transmission Date: 20060218
  Serious: Yes (Hospitalization, Other)
  Sender: FDA-Public Use
  Company Number: JP-JNJFOC-20041202083

PATIENT
  Sex: Female
  Weight: 50 kg

DRUGS (16)
  1. REMICADE [Suspect]
     Route: 042
  2. REMICADE [Suspect]
     Route: 042
  3. REMICADE [Suspect]
     Indication: RHEUMATOID ARTHRITIS
     Route: 042
  4. RHEUMATREX [Suspect]
     Indication: RHEUMATOID ARTHRITIS
     Route: 048
  5. PREDONINE [Suspect]
     Route: 048
  6. PREDONINE [Suspect]
     Indication: RHEUMATOID ARTHRITIS
     Route: 048
  7. METHOTREXATE [Concomitant]
  8. METHOTREXATE [Concomitant]
  9. METHOTREXATE [Concomitant]
  10. MOBIC [Concomitant]
     Indication: RHEUMATOID ARTHRITIS
     Route: 048
  11. FOLIAMIN [Concomitant]
     Route: 048
  12. D-ALFA [Concomitant]
     Route: 048
  13. SELBEX [Concomitant]
     Route: 048
  14. BENET [Concomitant]
     Route: 048
  15. CHLORPHENIRAMINE MALEATE [Concomitant]
  16. VOLTAREN [Concomitant]
     Indication: RHEUMATOID ARTHRITIS
     Route: 054

REACTIONS (5)
  - ASTHMA [None]
  - DRUG INTERACTION [None]
  - PNEUMONIA [None]
  - PULMONARY TUBERCULOSIS [None]
  - PYREXIA [None]
